FAERS Safety Report 24424318 (Version 1)
Quarter: 2024Q4

REPORT INFORMATION
  Report Type: Spontaneous
  Country: US (occurrence: US)
  Receive Date: 20241010
  Receipt Date: 20241010
  Transmission Date: 20250115
  Serious: Yes (Other)
  Sender: LANNETT
  Company Number: US-LANNETT COMPANY, INC.-US-2024LAN000180

PATIENT
  Sex: Female

DRUGS (5)
  1. GLYCOLAX [Suspect]
     Active Substance: POLYETHYLENE GLYCOL 3350
     Indication: Product used for unknown indication
     Dosage: UNK, UNK
     Route: 065
  2. PULMICORT TURBUHALER [Suspect]
     Active Substance: BUDESONIDE
     Indication: Product used for unknown indication
     Dosage: UNK, UNK
     Route: 065
  3. ALBUTEROL [Suspect]
     Active Substance: ALBUTEROL
     Indication: Product used for unknown indication
     Dosage: UNK, UNK
     Route: 065
  4. FLONASE [Suspect]
     Active Substance: FLUTICASONE PROPIONATE
     Indication: Product used for unknown indication
     Dosage: UNK, UNK
     Route: 065
  5. ROBINUL [Suspect]
     Active Substance: GLYCOPYRROLATE
     Indication: Product used for unknown indication
     Dosage: UNK, UNK
     Route: 065

REACTIONS (9)
  - Neurodevelopmental disorder [Unknown]
  - Deafness [Unknown]
  - Neuromuscular scoliosis [Unknown]
  - Hypotonia [Unknown]
  - Joint contracture [Unknown]
  - Neuropathy peripheral [Unknown]
  - Chronic respiratory disease [Unknown]
  - Developmental delay [Unknown]
  - Dysphagia [Unknown]
